FAERS Safety Report 13961103 (Version 1)
Quarter: 2017Q3

REPORT INFORMATION
  Report Type: Spontaneous
  Country: US (occurrence: US)
  Receive Date: 20170912
  Receipt Date: 20170912
  Transmission Date: 20171128
  Serious: Yes (Hospitalization, Other)
  Sender: FDA-Public Use
  Company Number: US-GLAXOSMITHKLINE-US2017139817

PATIENT
  Age: 58 Year
  Sex: Female

DRUGS (5)
  1. ASPIRIN (BABY) [Concomitant]
     Active Substance: ASPIRIN
  2. TANZEUM [Suspect]
     Active Substance: ALBIGLUTIDE
     Dosage: 50 UNK, UNK
  3. IRBESARTAN. [Concomitant]
     Active Substance: IRBESARTAN
  4. TANZEUM [Suspect]
     Active Substance: ALBIGLUTIDE
     Indication: TYPE 2 DIABETES MELLITUS
     Dosage: 30 MG, WE
     Route: 058
     Dates: start: 201501
  5. METFORMIN [Concomitant]
     Active Substance: METFORMIN HYDROCHLORIDE

REACTIONS (8)
  - Injection site erythema [Recovering/Resolving]
  - Hysterectomy [Recovered/Resolved]
  - Drug ineffective [Recovered/Resolved]
  - Injection site rash [Recovering/Resolving]
  - Uterine cancer [Recovered/Resolved]
  - Injection site pruritus [Recovering/Resolving]
  - Blood blister [Unknown]
  - Uterine dilation and curettage [Recovered/Resolved]

NARRATIVE: CASE EVENT DATE: 20150331
